FAERS Safety Report 19087077 (Version 1)
Quarter: 2021Q2

REPORT INFORMATION
  Report Type: Spontaneous
  Country: US (occurrence: US)
  Receive Date: 20210402
  Receipt Date: 20210402
  Transmission Date: 20210717
  Serious: No
  Sender: FDA-Public Use
  Company Number: US-PFIZER INC-2020497033

PATIENT
  Age: 35 Year
  Sex: Female

DRUGS (2)
  1. XELJANZ XR [Suspect]
     Active Substance: TOFACITINIB CITRATE
     Indication: RHEUMATOID ARTHRITIS
     Dosage: 11 MG, 1X/DAY (UP TO 30 DAYS, 30 TABLETS, 5 REFILLS)
     Route: 048
     Dates: start: 20210107
  2. XELJANZ [Suspect]
     Active Substance: TOFACITINIB CITRATE
     Indication: RHEUMATOID ARTHRITIS
     Dosage: 5 MG, 2X/DAY (UP TO 30 DAYS, 60 TABLETS, 5REFILLS)
     Route: 048

REACTIONS (4)
  - Drug ineffective [Unknown]
  - Discouragement [Unknown]
  - Depressed mood [Unknown]
  - Product prescribing error [Unknown]
